FAERS Safety Report 10242025 (Version 7)
Quarter: 2015Q2

REPORT INFORMATION
  Report Type: Spontaneous
  Country: US (occurrence: US)
  Receive Date: 20140617
  Receipt Date: 20150401
  Transmission Date: 20150821
  Serious: Yes (Hospitalization, Disabling, Other)
  Sender: FDA-Public Use
  Company Number: US-009507513-1406USA007811

PATIENT
  Sex: Male

DRUGS (9)
  1. FINASTERIDE. [Suspect]
     Active Substance: FINASTERIDE
     Indication: ANDROGENETIC ALOPECIA
     Dosage: 5 MG, QD
     Route: 048
     Dates: start: 200611, end: 201210
  2. FINASTERIDE. [Suspect]
     Active Substance: FINASTERIDE
     Dosage: 5 MG, 1/4 TABLET QD
     Route: 048
     Dates: start: 20090529
  3. EFFEXOR XR [Concomitant]
     Active Substance: VENLAFAXINE HYDROCHLORIDE
     Indication: DEPRESSION
     Dosage: 37.5 TO 75 MG, QD
     Dates: start: 1995, end: 20090316
  4. EFFEXOR XR [Concomitant]
     Active Substance: VENLAFAXINE HYDROCHLORIDE
     Dosage: 150 MG, QD
     Dates: start: 20090504, end: 20090504
  5. PROPECIA [Suspect]
     Active Substance: FINASTERIDE
     Indication: ANDROGENETIC ALOPECIA
     Dosage: 1 MG, QD
     Route: 048
     Dates: start: 2003, end: 2010
  6. PROSCAR [Suspect]
     Active Substance: FINASTERIDE
     Indication: ANDROGENETIC ALOPECIA
     Dosage: 5 MG, UNK
     Route: 048
     Dates: start: 2003, end: 2010
  7. EFFEXOR XR [Concomitant]
     Active Substance: VENLAFAXINE HYDROCHLORIDE
     Dosage: 75 MG, QD
     Dates: start: 200905, end: 20090504
  8. PROSCAR [Suspect]
     Active Substance: FINASTERIDE
     Dosage: 5 MG, 1/4 TABLET QD
     Route: 048
     Dates: start: 20070221, end: 2010
  9. HYDROCODONE [Concomitant]
     Active Substance: HYDROCODONE
     Indication: SURGERY
     Dosage: UNK
     Dates: start: 1998, end: 2009

REACTIONS (45)
  - Erectile dysfunction [Not Recovered/Not Resolved]
  - Vasectomy [Unknown]
  - Cervical radiculopathy [Unknown]
  - Back pain [Not Recovered/Not Resolved]
  - Major depression [Not Recovered/Not Resolved]
  - Ejaculation disorder [Not Recovered/Not Resolved]
  - Sexually transmitted disease [Unknown]
  - Anger [Unknown]
  - Generalised anxiety disorder [Not Recovered/Not Resolved]
  - Bipolar disorder [Not Recovered/Not Resolved]
  - Feeling abnormal [Not Recovered/Not Resolved]
  - Sexual dysfunction [Not Recovered/Not Resolved]
  - Hair transplant [Unknown]
  - Influenza [Unknown]
  - Insomnia [Unknown]
  - Panic attack [Not Recovered/Not Resolved]
  - Wrong technique in drug usage process [Unknown]
  - Pain [Unknown]
  - Suicidal ideation [Not Recovered/Not Resolved]
  - Libido decreased [Not Recovered/Not Resolved]
  - Drug administration error [Unknown]
  - Genital pain [Unknown]
  - Neuropathy peripheral [Unknown]
  - Chest pain [Unknown]
  - Testicular pain [Unknown]
  - Attention deficit/hyperactivity disorder [Not Recovered/Not Resolved]
  - Pain in extremity [Unknown]
  - Peyronie^s disease [Unknown]
  - Penile curvature [Unknown]
  - Anxiety [Unknown]
  - Cognitive disorder [Not Recovered/Not Resolved]
  - Fatigue [Unknown]
  - Secondary hypogonadism [Unknown]
  - Prostatic pain [Unknown]
  - Male orgasmic disorder [Unknown]
  - Adverse drug reaction [Not Recovered/Not Resolved]
  - Spinal osteoarthritis [Unknown]
  - Spinal operation [Unknown]
  - Ejaculation failure [Not Recovered/Not Resolved]
  - Neuralgia [Unknown]
  - Drug abuse [Unknown]
  - Libido decreased [Unknown]
  - Aggression [Unknown]
  - Dyspnoea [Unknown]
  - Diarrhoea [Unknown]

NARRATIVE: CASE EVENT DATE: 2003
